FAERS Safety Report 19592682 (Version 2)
Quarter: 2021Q3

REPORT INFORMATION
  Report Type: Spontaneous
  Country: US (occurrence: US)
  Receive Date: 20210722
  Receipt Date: 20210809
  Transmission Date: 20211014
  Serious: No
  Sender: FDA-Public Use
  Company Number: US-BLUEPRINT MEDICINES CORPORATION-SP-US-2021-001048

PATIENT
  Sex: Female

DRUGS (3)
  1. AYVAKIT [Suspect]
     Active Substance: AVAPRITINIB
     Indication: SYSTEMIC MASTOCYTOSIS
     Route: 048
     Dates: start: 20210630
  2. PREDNISONE. [Concomitant]
     Active Substance: PREDNISONE
     Indication: BLOOD COUNT ABNORMAL
  3. PREDNISONE. [Concomitant]
     Active Substance: PREDNISONE
     Indication: DIARRHOEA
     Route: 065

REACTIONS (12)
  - Erythema [Recovered/Resolved]
  - Condition aggravated [Unknown]
  - Hypertension [Unknown]
  - Hot flush [Recovered/Resolved]
  - Miliaria [Recovered/Resolved]
  - Insomnia [Unknown]
  - Heart rate increased [Unknown]
  - Skin discolouration [Recovered/Resolved]
  - Rash erythematous [Recovered/Resolved]
  - Paraesthesia [Unknown]
  - Peripheral coldness [Unknown]
  - Thirst [Unknown]
